FAERS Safety Report 6786141-2 (Version None)
Quarter: 2010Q2

REPORT INFORMATION
  Report Type: 
  Country: None (occurrence: None)
  Receive Date: 20100621
  Receipt Date: 20100621
  Transmission Date: 20101027
  Serious: Yes (Other)
  Sender: FDA-Public Use
  Company Number: None

PATIENT
  Age: 42 Year
  Sex: Male
  Weight: 86.1834 kg

DRUGS (1)
  1. PHENERGAN [Suspect]

REACTIONS (6)
  - CATHETER SITE RELATED REACTION [None]
  - CAUSTIC INJURY [None]
  - CHEMICAL INJURY [None]
  - DEFORMITY [None]
  - PAIN [None]
  - VENOUS INJURY [None]
